FAERS Safety Report 4528943-9 (Version None)
Quarter: 2004Q4

REPORT INFORMATION
  Report Type: 
  Country: None (occurrence: None)
  Receive Date: 20041214
  Receipt Date: 20041203
  Transmission Date: 20050328
  Serious: Yes (Other)
  Sender: FDA-Public Use
  Company Number: IT-JNJFOC-20041201370

PATIENT

DRUGS (2)
  1. ANTALFEBAL (IBUPROFEN) SUSPENSION [Suspect]
     Indication: PAIN
     Dosage: ORAL
     Route: 048
  2. ANTALFEBAL (IBUPROFEN) SUSPENSION [Suspect]
     Indication: PYREXIA
     Dosage: ORAL
     Route: 048

REACTIONS (4)
  - BLOOD LACTATE DEHYDROGENASE INCREASED [None]
  - HAEMATEMESIS [None]
  - NECROSIS [None]
  - RED BLOOD CELL ABNORMALITY [None]
